FAERS Safety Report 6937382-2 (Version None)
Quarter: 2010Q3

REPORT INFORMATION
  Report Type: 
  Country: None (occurrence: None)
  Receive Date: 20100823
  Receipt Date: 20100816
  Transmission Date: 20110219
  Serious: Yes (Other)
  Sender: FDA-Public Use
  Company Number: CHPA2010US13334

PATIENT
  Age: 83 Year
  Sex: Male

DRUGS (2)
  1. VOLTAREN [Suspect]
     Indication: NEUROPATHY PERIPHERAL
     Dosage: 2 G, QD
     Route: 061
     Dates: end: 20100816
  2. ANTIHYPERTENSIVE DRUGS [Concomitant]

REACTIONS (5)
  - ATRIAL FIBRILLATION [None]
  - BLOOD PRESSURE FLUCTUATION [None]
  - OFF LABEL USE [None]
  - PAIN [None]
  - THERAPEUTIC RESPONSE UNEXPECTED [None]
